FAERS Safety Report 4319243-0 (Version None)
Quarter: 2004Q1

REPORT INFORMATION
  Report Type: 
  Country: None (occurrence: None)
  Receive Date: 20040316
  Receipt Date: 20040302
  Transmission Date: 20041129
  Serious: Yes (Hospitalization, Other)
  Sender: FDA-Public Use
  Company Number: 2004202018HK

PATIENT
  Age: 15 Year
  Sex: Female

DRUGS (8)
  1. SOLU-MEDROL [Suspect]
     Indication: RESPIRATORY DISORDER
     Dosage: 15 MG/KG, SINGLE, IV
     Route: 042
  2. CEFOTAXIME [Concomitant]
  3. CLARITHROMYCIN [Concomitant]
  4. OXYGEN [Concomitant]
  5. RIBAVIRIN [Concomitant]
  6. HYDROCORTISONE [Concomitant]
  7. VANCOMYCIN HYDROCHLORIDE [Concomitant]
  8. IMIPENEM [Concomitant]

REACTIONS (13)
  - AFFECT LABILITY [None]
  - ANTIBODY TEST ABNORMAL [None]
  - BLOOD ALBUMIN DECREASED [None]
  - BLOOD LACTATE DEHYDROGENASE INCREASED [None]
  - DYSPNOEA EXACERBATED [None]
  - EXERCISE TOLERANCE DECREASED [None]
  - FLUID RETENTION [None]
  - HYPERTENSION [None]
  - HYPOKALAEMIA [None]
  - INCOHERENT [None]
  - LYMPHOPENIA [None]
  - SINUS BRADYCARDIA [None]
  - WEIGHT DECREASED [None]
